FAERS Safety Report 14505046 (Version 2)
Quarter: 2018Q1

REPORT INFORMATION
  Report Type: Report from Study
  Country: JP (occurrence: JP)
  Receive Date: 20180208
  Receipt Date: 20180227
  Transmission Date: 20180509
  Serious: Yes (Death, Other)
  Sender: FDA-Public Use
  Company Number: JP-009507513-1712JPN000413J

PATIENT
  Age: 49 Year
  Sex: Male
  Weight: 63 kg

DRUGS (8)
  1. LYRICA [Concomitant]
     Active Substance: PREGABALIN
     Indication: HYPOAESTHESIA
     Dosage: 75 MG, BID
     Route: 048
     Dates: start: 20170417
  2. LOXOPROFEN [Concomitant]
     Active Substance: LOXOPROFEN
     Dosage: 60 MG, TID
     Route: 048
  3. EXCEGRAN [Concomitant]
     Active Substance: ZONISAMIDE
     Indication: PROPHYLAXIS
     Dosage: 100 MG, BID
     Route: 048
     Dates: start: 20170417
  4. KEYTRUDA [Suspect]
     Active Substance: PEMBROLIZUMAB
     Indication: LUNG ADENOCARCINOMA
     Dosage: 200 MG, Q3W
     Route: 041
     Dates: start: 20170405, end: 20170502
  5. OXYCONTIN [Concomitant]
     Active Substance: OXYCODONE HYDROCHLORIDE
     Dosage: 5 MG, BID
     Route: 048
  6. OPSO [Concomitant]
     Active Substance: MORPHINE HYDROCHLORIDE
     Dosage: 5.0 MG, PRN
     Route: 048
     Dates: start: 20170515
  7. TEPRENONE [Concomitant]
     Active Substance: TEPRENONE
     Indication: PROPHYLAXIS
     Dosage: 50 MG, TID
     Route: 048
  8. OXINORM (OXYCODONE HYDROCHLORIDE) [Concomitant]
     Active Substance: OXYCODONE HYDROCHLORIDE
     Dosage: 10.0 MG, PRN
     Route: 048
     Dates: end: 20170507

REACTIONS (2)
  - Cough [Not Recovered/Not Resolved]
  - Malignant neoplasm progression [Fatal]

NARRATIVE: CASE EVENT DATE: 2017
